FAERS Safety Report 24631372 (Version 2)
Quarter: 2024Q4

REPORT INFORMATION
  Report Type: Spontaneous
  Country: JP (occurrence: JP)
  Receive Date: 20241118
  Receipt Date: 20241120
  Transmission Date: 20250115
  Serious: Yes (Death, Other)
  Sender: ABBVIE
  Company Number: JP-TAKEDA-2024TJP016374

PATIENT
  Age: 45 Year
  Sex: Female

DRUGS (1)
  1. LEUPLIN [Suspect]
     Active Substance: LEUPROLIDE ACETATE
     Indication: Breast cancer
     Route: 058
     Dates: start: 20240909, end: 20240909

REACTIONS (1)
  - Autoimmune haemolytic anaemia [Fatal]

NARRATIVE: CASE EVENT DATE: 20240910
